FAERS Safety Report 25141548 (Version 1)
Quarter: 2025Q1

REPORT INFORMATION
  Report Type: Spontaneous
  Country: US (occurrence: US)
  Receive Date: 20250331
  Receipt Date: 20250331
  Transmission Date: 20250409
  Serious: No
  Sender: SANOFI AVENTIS
  Company Number: US-SA-2025SA091254

PATIENT
  Age: 74 Year
  Sex: Female
  Weight: 140.91 kg

DRUGS (1)
  1. DUPIXENT [Suspect]
     Active Substance: DUPILUMAB
     Indication: Ill-defined disorder
     Dosage: 300MG QOW
     Route: 058
     Dates: start: 202502

REACTIONS (1)
  - Pain [Unknown]

NARRATIVE: CASE EVENT DATE: 20250101
